FAERS Safety Report 15404601 (Version 7)
Quarter: 2020Q1

REPORT INFORMATION
  Report Type: Report from Study
  Country: BR (occurrence: BR)
  Receive Date: 20180919
  Receipt Date: 20200326
  Transmission Date: 20200409
  Serious: Yes (Other)
  Sender: FDA-Public Use
  Company Number: BR-TAKEDA-2018TUS000199

PATIENT
  Age: 56 Year
  Sex: Female
  Weight: 66 kg

DRUGS (9)
  1. VEDOLIZUMAB [Suspect]
     Active Substance: VEDOLIZUMAB
     Dosage: 300 MILLIGRAM
     Route: 042
  2. PURAN [Concomitant]
     Active Substance: LEVOTHYROXINE SODIUM
     Indication: THYROID DISORDER
     Dosage: 100 MILLIGRAM, QD
     Route: 048
  3. RIVOTRIL [Concomitant]
     Active Substance: CLONAZEPAM
     Indication: PANIC DISORDER
  4. SUMAX                              /01044801/ [Concomitant]
     Indication: MIGRAINE
     Dosage: 50 MILLIGRAM
     Route: 048
     Dates: start: 2018
  5. CITALOPRAM [Concomitant]
     Active Substance: CITALOPRAM HYDROBROMIDE
     Indication: ANXIETY
     Dosage: 20 MILLIGRAM, QD
     Route: 048
  6. VEDOLIZUMAB [Suspect]
     Active Substance: VEDOLIZUMAB
     Indication: CROHN^S DISEASE
     Dosage: 300 MILLIGRAM
     Route: 042
     Dates: start: 20171228
  7. MESACOL MMX [Suspect]
     Active Substance: MESALAMINE
     Indication: PRODUCT USED FOR UNKNOWN INDICATION
     Dosage: 500 MILLIGRAM
     Route: 065
     Dates: start: 2017
  8. RIVOTRIL [Concomitant]
     Active Substance: CLONAZEPAM
     Indication: DEPRESSION
     Dosage: UNK UNK, QD
     Route: 048
  9. IMOSEC [Concomitant]
     Active Substance: LOPERAMIDE
     Dosage: UNK
     Route: 048

REACTIONS (41)
  - Frequent bowel movements [Unknown]
  - Bladder disorder [Unknown]
  - Hiatus hernia [Unknown]
  - Anal haemorrhage [Not Recovered/Not Resolved]
  - Vomiting [Unknown]
  - Animal bite [Unknown]
  - Proctalgia [Not Recovered/Not Resolved]
  - Feeling abnormal [Recovered/Resolved]
  - Rectal haemorrhage [Unknown]
  - Decreased immune responsiveness [Unknown]
  - Rectal discharge [Recovered/Resolved]
  - Anaemia [Unknown]
  - Acne [Not Recovered/Not Resolved]
  - Malaise [Unknown]
  - Paraesthesia oral [Recovered/Resolved]
  - Nausea [Recovered/Resolved]
  - Rectal abscess [Unknown]
  - C-reactive protein increased [Unknown]
  - Gastrooesophageal reflux disease [Unknown]
  - Anal fistula [Unknown]
  - Pyrexia [Not Recovered/Not Resolved]
  - Fistula [Unknown]
  - Somnolence [Not Recovered/Not Resolved]
  - Abdominal pain upper [Unknown]
  - Blister [Unknown]
  - Dyschezia [Unknown]
  - Gastrointestinal pain [Unknown]
  - Gastritis [Unknown]
  - Hyperhidrosis [Unknown]
  - Headache [Recovered/Resolved]
  - Wound [Not Recovered/Not Resolved]
  - Pain [Recovered/Resolved]
  - Wound infection [Unknown]
  - Pulmonary pain [Recovered/Resolved]
  - Abdominal pain [Not Recovered/Not Resolved]
  - Asthenia [Unknown]
  - Infusion site rash [Recovered/Resolved]
  - Pruritus [Recovered/Resolved]
  - Diverticulitis [Unknown]
  - Diarrhoea [Unknown]
  - Fatigue [Unknown]

NARRATIVE: CASE EVENT DATE: 2017
